FAERS Safety Report 7088914-8 (Version None)
Quarter: 2010Q4

REPORT INFORMATION
  Report Type: 
  Country: None (occurrence: None)
  Receive Date: 20101108
  Receipt Date: 20101028
  Transmission Date: 20110411
  Serious: Yes (Other)
  Sender: FDA-Public Use
  Company Number: US-JNJFOC-20101100060

PATIENT
  Sex: Male

DRUGS (4)
  1. SIMPONI [Suspect]
     Indication: RHEUMATOID ARTHRITIS
     Route: 058
  2. HYDROCODONE BITARTRATE [Concomitant]
     Indication: PAIN
  3. PREDNISONE [Concomitant]
     Indication: RHEUMATOID ARTHRITIS
  4. VITAMIN TAB [Concomitant]
     Indication: NUTRITIONAL SUPPORT

REACTIONS (1)
  - NEOPLASM MALIGNANT [None]
